FAERS Safety Report 4335065-9 (Version None)
Quarter: 2004Q1

REPORT INFORMATION
  Report Type: 
  Country: None (occurrence: None)
  Receive Date: 20040329
  Receipt Date: 20040127
  Transmission Date: 20041129
  Serious: No
  Sender: FDA-Public Use
  Company Number: 04P-163-0248649-00

PATIENT
  Age: 58 Year
  Sex: Female
  Weight: 54.4316 kg

DRUGS (17)
  1. HUMIRA [Suspect]
     Indication: RHEUMATOID ARTHRITIS
     Dosage: 40 MG, 1 IN 2 WK, SUBCUTANEOUS
     Route: 058
     Dates: start: 20030701
  2. MEXLOXICAM [Concomitant]
  3. LEFLUNOMIDE [Concomitant]
  4. OXYBUTYNIN [Concomitant]
  5. NITROFURANTOIN [Concomitant]
  6. RALOXIFENE HCL [Concomitant]
  7. DEXTROPROPOXYPHENE [Concomitant]
  8. ESOMEPRAZOLE [Concomitant]
  9. ATORVASTATIN [Concomitant]
  10. VERAPAMIL [Concomitant]
  11. CLONIDINE [Concomitant]
  12. TRAZODONE HCL [Concomitant]
  13. TRIAMTERENE [Concomitant]
  14. KCI-XR [Concomitant]
  15. FOLIC ACID [Concomitant]
  16. RANITIDINE [Concomitant]
  17. AMMONIUM LACTATE [Concomitant]

REACTIONS (1)
  - INJECTION SITE PAIN [None]
